FAERS Safety Report 8832804 (Version 2)
Quarter: 2012Q4

REPORT INFORMATION
  Report Type: 
  Country: US (occurrence: US)
  Receive Date: 20121010
  Receipt Date: 20121113
  Transmission Date: 20130627
  Serious: Yes (Hospitalization)
  Sender: FDA-Public Use
  Company Number: US-BIOGENIDEC-2012BI042866

PATIENT
  Age: 42 Year
  Sex: Female

DRUGS (9)
  1. TYSABRI [Suspect]
     Indication: MULTIPLE SCLEROSIS
     Route: 042
     Dates: start: 20120416
  2. AMBIEN [Concomitant]
     Route: 048
  3. ULTRAM [Concomitant]
     Route: 048
  4. TOPAMAX [Concomitant]
     Route: 048
  5. ARICEPT [Concomitant]
     Route: 048
  6. MIRTAZEPINE [Concomitant]
     Route: 048
  7. CYMBALTA [Concomitant]
     Route: 048
  8. VITAMIN B12 [Concomitant]
     Route: 048
  9. VITAMIN D [Concomitant]
     Route: 048

REACTIONS (3)
  - Multiple sclerosis relapse [Recovered/Resolved]
  - Migraine [Recovered/Resolved]
  - Constipation [Recovered/Resolved]
